FAERS Safety Report 9310674 (Version 3)
Quarter: 2014Q1

REPORT INFORMATION
  Report Type: Report from Study
  Country: SE (occurrence: SE)
  Receive Date: 20130527
  Receipt Date: 20140224
  Transmission Date: 20141002
  Serious: Yes (Hospitalization)
  Sender: FDA-Public Use
  Company Number: SE-ROCHE-1225708

PATIENT
  Age: 66 Year
  Sex: Female

DRUGS (13)
  1. CAPECITABINE [Suspect]
     Indication: GASTRIC CANCER
     Dosage: BID FOR 2 WEEKS, 3 WEEKS BID5 WEEKS
     Route: 048
     Dates: start: 20130415, end: 20130603
  2. CAPECITABINE [Suspect]
     Route: 048
     Dates: start: 20130503
  3. CAPECITABINE [Suspect]
     Route: 048
     Dates: start: 20130527
  4. EPIRUBICIN [Suspect]
     Indication: GASTRIC CANCER
     Route: 042
     Dates: start: 20130415, end: 20130527
  5. EPIRUBICIN [Suspect]
     Route: 042
     Dates: start: 20130415, end: 20130506
  6. EPIRUBICIN [Suspect]
     Route: 042
     Dates: start: 20130527
  7. OXALIPLATIN [Suspect]
     Indication: GASTRIC CANCER
     Dosage: Q3W/Q1W, 5 WEEKS
     Route: 042
     Dates: start: 20130415, end: 20130527
  8. OXALIPLATIN [Suspect]
     Dosage: Q3W/Q1W, 5 WEEKS
     Route: 042
     Dates: start: 20130415, end: 20130506
  9. OXALIPLATIN [Suspect]
     Route: 042
     Dates: start: 20130527
  10. METOCLOPRAMIDE [Concomitant]
     Indication: GASTRIC CANCER
     Dosage: AS REQUIRED
     Route: 065
     Dates: start: 20130422
  11. METOCLOPRAMIDE [Concomitant]
     Dosage: DAILY
     Route: 065
  12. ONDANSETRON [Concomitant]
     Dosage: AS REQUIRED
     Route: 065
     Dates: start: 20130426
  13. ONDANSETRON [Concomitant]
     Dosage: DAILY
     Route: 065

REACTIONS (9)
  - Decreased appetite [Recovered/Resolved]
  - Nausea [Recovered/Resolved]
  - Vomiting [Recovered/Resolved]
  - Hypokalaemia [Recovered/Resolved]
  - Haemoglobin decreased [Recovered/Resolved]
  - Neutropenia [Recovered/Resolved]
  - Anxiety [Recovered/Resolved]
  - Depression [Recovered/Resolved]
  - Enteritis [Recovered/Resolved]
